FAERS Safety Report 13681925 (Version 1)
Quarter: 2017Q2

REPORT INFORMATION
  Report Type: Spontaneous
  Country: US (occurrence: US)
  Receive Date: 20170623
  Receipt Date: 20170623
  Transmission Date: 20170830
  Serious: Yes (Hospitalization, Other)
  Sender: FDA-Public Use
  Company Number: None

PATIENT
  Age: 67 Year
  Sex: Female
  Weight: 99.79 kg

DRUGS (1)
  1. HUMIRA [Suspect]
     Active Substance: ADALIMUMAB
     Indication: SARCOIDOSIS
     Dosage: DOSE AMOUNT - 1 PEN INJECTION - WEEK
     Dates: start: 201601, end: 201603

REACTIONS (9)
  - Eye disorder [None]
  - Pruritus [None]
  - Ear disorder [None]
  - Pharyngeal disorder [None]
  - Nasal disorder [None]
  - Burning sensation [None]
  - Dyspnoea [None]
  - Headache [None]
  - Nausea [None]

NARRATIVE: CASE EVENT DATE: 20160331
